FAERS Safety Report 17961217 (Version 1)
Quarter: 2020Q2

REPORT INFORMATION
  Report Type: Spontaneous
  Country: US (occurrence: US)
  Receive Date: 20200629
  Receipt Date: 20200629
  Transmission Date: 20200714
  Serious: No
  Sender: FDA-Public Use
  Company Number: None

PATIENT
  Age: 68 Year
  Sex: Male

DRUGS (1)
  1. CLINDAMYCIN (CLINDAMYCIN HCL 150MG CAP) [Suspect]
     Active Substance: CLINDAMYCIN
     Indication: SINUSITIS
     Route: 048
     Dates: start: 20190712, end: 20190713

REACTIONS (1)
  - Rash [None]

NARRATIVE: CASE EVENT DATE: 20190713
